FAERS Safety Report 7337247-0 (Version None)
Quarter: 2011Q1

REPORT INFORMATION
  Report Type: 
  Country: None (occurrence: None)
  Receive Date: 20110308
  Receipt Date: 20110222
  Transmission Date: 20110831
  Serious: Yes (Hospitalization)
  Sender: FDA-Public Use
  Company Number: US-ELI_LILLY_AND_COMPANY-US201102000940

PATIENT
  Sex: Female

DRUGS (2)
  1. HUMALOG [Suspect]
     Indication: DIABETES MELLITUS
     Dosage: 5 U, 3/D
  2. LANTUS [Concomitant]

REACTIONS (5)
  - MALAISE [None]
  - WHEEZING [None]
  - COUGH [None]
  - ASTHMA [None]
  - DYSSTASIA [None]
